FAERS Safety Report 7619157-4 (Version None)
Quarter: 2011Q3

REPORT INFORMATION
  Report Type: 
  Country: None (occurrence: None)
  Receive Date: 20110718
  Receipt Date: 20110714
  Transmission Date: 20111222
  Serious: Yes (Life-Threatening, Hospitalization)
  Sender: FDA-Public Use
  Company Number: GB-ASTRAZENECA-2011SE42063

PATIENT
  Age: 57 Year
  Sex: Male

DRUGS (10)
  1. GENTAMICIN [Suspect]
     Indication: PROPHYLAXIS
     Route: 042
  2. FENTANYL-100 [Suspect]
     Route: 042
     Dates: start: 20110620
  3. CHLORHEXIDINE GLUCONATE [Suspect]
     Route: 061
     Dates: start: 20110620
  4. DEXAMETHASONE [Suspect]
     Indication: PROPHYLAXIS
     Route: 042
  5. PREDNISOLONE [Concomitant]
     Indication: RASH
  6. TEICOPLANIN [Suspect]
     Indication: PROPHYLAXIS
     Route: 042
     Dates: start: 20110620
  7. LANSOPRAZOLE [Concomitant]
  8. PROPOFOL [Suspect]
     Route: 042
     Dates: start: 20110620
  9. VENTOLIN HFA [Concomitant]
  10. LEVOBUPIVACAINE [Suspect]
     Indication: NERVE BLOCK
     Dates: start: 20110620

REACTIONS (1)
  - ANAPHYLACTIC REACTION [None]
